FAERS Safety Report 23950890 (Version 1)
Quarter: 2024Q2

REPORT INFORMATION
  Report Type: Spontaneous
  Country: US (occurrence: US)
  Receive Date: 20240607
  Receipt Date: 20240607
  Transmission Date: 20240716
  Serious: No
  Sender: FDA-Public Use
  Company Number: US-SPRINGWORKS THERAPEUTICS-SW-001532

PATIENT
  Sex: Male

DRUGS (2)
  1. OGSIVEO [Suspect]
     Active Substance: NIROGACESTAT HYDROBROMIDE
     Indication: Desmoid tumour
     Dosage: UNK
     Dates: start: 202403, end: 20240408
  2. OGSIVEO [Suspect]
     Active Substance: NIROGACESTAT HYDROBROMIDE
     Dosage: 100 MILLIGRAM

REACTIONS (2)
  - Diarrhoea [Unknown]
  - Hypophosphataemia [Unknown]
